FAERS Safety Report 6386370-6 (Version None)
Quarter: 2009Q3

REPORT INFORMATION
  Report Type: 
  Country: None (occurrence: None)
  Receive Date: 20090930
  Receipt Date: 20090930
  Transmission Date: 20100115
  Serious: Yes (Other)
  Sender: FDA-Public Use
  Company Number: None

PATIENT
  Age: 68 Year
  Sex: Female
  Weight: 82.5547 kg

DRUGS (1)
  1. INDOMETHACIN [Suspect]
     Indication: GOUT
     Dosage: 50 MG THREE TIMES A DAY PO
     Route: 048
     Dates: start: 20090921, end: 20090924

REACTIONS (4)
  - HALLUCINATION, AUDITORY [None]
  - PANIC REACTION [None]
  - PSYCHOTIC BEHAVIOUR [None]
  - UNEVALUABLE EVENT [None]
